FAERS Safety Report 6617961-2 (Version None)
Quarter: 2010Q1

REPORT INFORMATION
  Report Type: 
  Country: None (occurrence: None)
  Receive Date: 20100308
  Receipt Date: 20100225
  Transmission Date: 20100710
  Serious: Yes (Other)
  Sender: FDA-Public Use
  Company Number: PHHY2010TR11146

PATIENT
  Age: 70 Year
  Sex: Female

DRUGS (1)
  1. VOLTAREN [Suspect]
     Indication: PAIN
     Dosage: 1 DF DAILY
     Route: 048

REACTIONS (4)
  - DYSPNOEA [None]
  - ERYTHEMA [None]
  - JOINT SWELLING [None]
  - SWOLLEN TONGUE [None]
